FAERS Safety Report 19990585 (Version 1)
Quarter: 2021Q4

REPORT INFORMATION
  Report Type: Spontaneous
  Country: ES (occurrence: ES)
  Receive Date: 20211025
  Receipt Date: 20211025
  Transmission Date: 20220304
  Serious: Yes (Other)
  Sender: FDA-Public Use
  Company Number: None

PATIENT
  Age: 73 Year
  Sex: Female

DRUGS (6)
  1. PACLITAXEL [Suspect]
     Active Substance: PACLITAXEL
     Indication: Neoplasm
     Dosage: (2698A)
     Route: 042
     Dates: start: 20210316, end: 20210316
  2. Acetylsalicylic acid Stada [Concomitant]
     Dosage: 100 MG GASTRO-RESISTANT TABLETS EFG, 30 TABLETS
     Route: 048
     Dates: start: 20140520
  3. Ibuprofen Cinfamed [Concomitant]
     Dosage: 400 MG FILM-COATED TABLETS EFG, 30 TABLETS
     Route: 048
     Dates: start: 20201216
  4. LORAZEPAM [Concomitant]
     Active Substance: LORAZEPAM
     Dosage: 1 MG TABLETS EFG, 50 TABLETS
     Route: 048
     Dates: start: 20190814
  5. Omeprazole Stada [Concomitant]
     Dosage: 20 MG GASTRO-RESISTANT HARD CAPSULES EFG, 28 CAPSULES
     Route: 048
     Dates: start: 20200304
  6. Simvastatin Cinfa [Concomitant]
     Dosage: 10 MG FILM-COATED TABLETS EFG, 28 TABLETS
     Route: 048
     Dates: start: 20110520

REACTIONS (3)
  - Syncope [Recovered/Resolved]
  - Back pain [Recovered/Resolved]
  - Chest pain [Recovered/Resolved]

NARRATIVE: CASE EVENT DATE: 20210316
